FAERS Safety Report 4371830-X (Version None)
Quarter: 2004Q2

REPORT INFORMATION
  Report Type: 
  Country: None (occurrence: None)
  Receive Date: 20040602
  Receipt Date: 20040524
  Transmission Date: 20050107
  Serious: Yes (Life-Threatening, Hospitalization, Disabling)
  Sender: FDA-Public Use
  Company Number: 2004215042US

PATIENT
  Age: 16 Year
  Sex: Male
  Weight: 55.7 kg

DRUGS (4)
  1. GENOTROPIN [Suspect]
     Indication: HYPOPITUITARISM
     Dosage: 12.6 MG, WEEKLY
     Dates: start: 20000404, end: 20040415
  2. ASPIRIN [Concomitant]
  3. CALCIUM [Concomitant]
  4. CARBAMAZEPINE [Concomitant]

REACTIONS (2)
  - CEREBROVASCULAR ACCIDENT [None]
  - EPILEPSY [None]
